FAERS Safety Report 12184631 (Version 1)
Quarter: 2016Q1

REPORT INFORMATION
  Report Type: Report from Study
  Country: US (occurrence: US)
  Receive Date: 20160316
  Receipt Date: 20160316
  Transmission Date: 20160526
  Serious: Yes (Other)
  Sender: FDA-Public Use
  Company Number: US-BRISTOL-MYERS SQUIBB COMPANY-BMS-2016-017180

PATIENT
  Age: 66 Year
  Sex: Female
  Weight: 92.63 kg

DRUGS (3)
  1. ABATACEPT [Suspect]
     Active Substance: ABATACEPT
     Indication: RHEUMATOID ARTHRITIS
     Dosage: 125 MG/ML, UNK; 2-3 YEARS AGO
     Route: 058
  2. PERCOCET                           /00446701/ [Concomitant]
     Active Substance: ACETAMINOPHEN\OXYCODONE HYDROCHLORIDE\OXYCODONE TEREPHTHALATE
     Indication: PRODUCT USED FOR UNKNOWN INDICATION
     Route: 065
  3. ZOLOFT [Concomitant]
     Active Substance: SERTRALINE HYDROCHLORIDE
     Indication: PRODUCT USED FOR UNKNOWN INDICATION
     Route: 065

REACTIONS (8)
  - Mycobacterium tuberculosis complex test positive [Unknown]
  - Skin disorder [Unknown]
  - Lymphoma [Unknown]
  - Surgery [Unknown]
  - Gingivitis [Unknown]
  - Tooth extraction [Unknown]
  - Nerve compression [Unknown]
  - Sciatica [Unknown]

NARRATIVE: CASE EVENT DATE: 201507
